FAERS Safety Report 9547509 (Version 1)
Quarter: 2013Q3

REPORT INFORMATION
  Report Type: Spontaneous
  Country: US (occurrence: None)
  Receive Date: 20130705
  Receipt Date: 20130705
  Transmission Date: 20140515
  Serious: Yes (Death)
  Sender: FDA-Public Use
  Company Number: 2013020107

PATIENT
  Age: 46 Year
  Sex: Female

DRUGS (3)
  1. CARISOPRODOL [Suspect]
     Route: 048
  2. ALPRAZOLAM [Suspect]
     Route: 048
  3. HYDROCODONE W/ACETAMINOPHEN [Suspect]

REACTIONS (1)
  - Drug abuse [None]
